FAERS Safety Report 7359466-X (Version None)
Quarter: 2011Q1

REPORT INFORMATION
  Report Type: 
  Country: None (occurrence: None)
  Receive Date: 20110317
  Receipt Date: 20091201
  Transmission Date: 20110831
  Serious: Yes (Other)
  Sender: FDA-Public Use
  Company Number: US-PFIZER INC-2009297174

PATIENT
  Sex: Male
  Weight: 113 kg

DRUGS (6)
  1. NORVASC [Suspect]
     Indication: HYPERTENSION
  2. AMLODIPINE BESYLATE [Suspect]
     Indication: CHEST PAIN
     Dates: start: 20090101, end: 20091001
  3. AMLODIPINE BESYLATE [Suspect]
     Indication: HYPERTENSION
  4. AMLODIPINE BESYLATE [Suspect]
     Indication: PALPITATIONS
  5. NORVASC [Suspect]
     Indication: CHEST PAIN
     Dosage: 5 MG, 1X/DAY
  6. NORVASC [Suspect]
     Indication: PALPITATIONS

REACTIONS (3)
  - BLOOD CHOLESTEROL INCREASED [None]
  - BACK PAIN [None]
  - MEMORY IMPAIRMENT [None]
